FAERS Safety Report 8538601-1 (Version None)
Quarter: 2012Q3

REPORT INFORMATION
  Report Type: 
  Country: None (occurrence: None)
  Receive Date: 20120726
  Receipt Date: 20120718
  Transmission Date: 20120928
  Serious: Yes (Other)
  Sender: FDA-Public Use
  Company Number: US-US-EMD SERONO, INC.-7146742

PATIENT
  Sex: Female

DRUGS (1)
  1. REBIF [Suspect]
     Indication: MULTIPLE SCLEROSIS
     Route: 058
     Dates: start: 20120209, end: 20120628

REACTIONS (7)
  - INFLUENZA LIKE ILLNESS [None]
  - ANAEMIA [None]
  - UTERINE POLYP [None]
  - ASTHENIA [None]
  - INJECTION SITE HAEMATOMA [None]
  - INSOMNIA [None]
  - MENORRHAGIA [None]
